FAERS Safety Report 8814238 (Version 1)
Quarter: 2012Q4

REPORT INFORMATION
  Report Type: Spontaneous
  Country: US (occurrence: None)
  Receive Date: 20120926
  Receipt Date: 20120926
  Transmission Date: 20130627
  Serious: Yes (Hospitalization)
  Sender: FDA-Public Use
  Company Number: None

PATIENT
  Age: 66 Year
  Sex: Male
  Weight: 124.3 kg

DRUGS (2)
  1. DILTIAZEM [Suspect]
     Indication: HYPERTENSION
     Dosage: MG EVERY DAY PO
     Route: 048
     Dates: start: 20100419, end: 20120911
  2. METOPROLOL [Suspect]
     Indication: HYPERTENSION
     Dosage: MG BID PO
     Route: 048
     Dates: start: 20120828, end: 20120911

REACTIONS (3)
  - Atrioventricular block [None]
  - Syncope [None]
  - Hypotension [None]
